FAERS Safety Report 12873127 (Version 1)
Quarter: 2016Q4

REPORT INFORMATION
  Report Type: Spontaneous
  Country: US (occurrence: US)
  Receive Date: 20161021
  Receipt Date: 20161021
  Transmission Date: 20170207
  Serious: No
  Sender: FDA-Public Use
  Company Number: US-TAMARANG, S.A.-1058612

PATIENT
  Age: 81 Year
  Sex: Male
  Weight: 76.5 kg

DRUGS (4)
  1. FENTANYL. [Concomitant]
     Active Substance: FENTANYL
     Dates: start: 20160629, end: 20160629
  2. PROPOFOL. [Concomitant]
     Active Substance: PROPOFOL
     Dates: start: 20160629, end: 20160629
  3. DESFLURANE. [Concomitant]
     Active Substance: DESFLURANE
     Dates: start: 20160629, end: 20160629
  4. ROCURONIUM BROMIDE. [Suspect]
     Active Substance: ROCURONIUM BROMIDE
     Indication: NEUROMUSCULAR BLOCKADE
     Route: 042
     Dates: start: 20160629, end: 20160629

REACTIONS (1)
  - Drug ineffective [Recovered/Resolved]

NARRATIVE: CASE EVENT DATE: 20160629
